FAERS Safety Report 19138552 (Version 1)
Quarter: 2021Q2

REPORT INFORMATION
  Report Type: Spontaneous
  Country: ES (occurrence: ES)
  Receive Date: 20210415
  Receipt Date: 20210415
  Transmission Date: 20210717
  Serious: Yes (Hospitalization)
  Sender: FDA-Public Use
  Company Number: ES-TEVA-2021-ES-1900068

PATIENT
  Age: 65 Year
  Sex: Female

DRUGS (4)
  1. LEVOFLOXACINO (2791A) [Suspect]
     Active Substance: LEVOFLOXACIN
     Indication: PNEUMONIA
     Dosage: 500MILLIGRAM
     Route: 048
     Dates: start: 20201207, end: 20201209
  2. PARACETAMOL (12A) [Suspect]
     Active Substance: ACETAMINOPHEN
     Indication: PYREXIA
     Route: 042
     Dates: start: 20201204, end: 20201210
  3. MICOFENOLATO DE MOFETILO (7330LM) [Concomitant]
     Active Substance: MYCOPHENOLATE MOFETIL
     Indication: HAEMORRHAGIC VASCULITIS
     Route: 048
     Dates: start: 201911
  4. AMLODIPINO (2503A) [Suspect]
     Active Substance: AMLODIPINE BESYLATE
     Indication: HYPERTENSION
     Dosage: 5MILLIGRAM
     Route: 048
     Dates: start: 20201205, end: 20201211

REACTIONS (1)
  - Hypertransaminasaemia [Recovered/Resolved]

NARRATIVE: CASE EVENT DATE: 20201209
